FAERS Safety Report 8430622-2 (Version None)
Quarter: 2012Q2

REPORT INFORMATION
  Report Type: 
  Country: None (occurrence: None)
  Receive Date: 20120606
  Receipt Date: 20120606
  Transmission Date: 20120825
  Serious: Yes (Hospitalization)
  Sender: FDA-Public Use
  Company Number: None

PATIENT
  Sex: Male
  Weight: 63.6 kg

DRUGS (2)
  1. TAXOL [Suspect]
     Dosage: 86 MG
     Dates: end: 20120430
  2. CISPLATIN [Suspect]
     Dosage: 43 MG
     Dates: end: 20120430

REACTIONS (4)
  - NEUTROPENIA [None]
  - STREPTOCOCCAL BACTERAEMIA [None]
  - NAUSEA [None]
  - VOMITING [None]
